FAERS Safety Report 24682515 (Version 13)
Quarter: 2025Q2

REPORT INFORMATION
  Report Type: Spontaneous
  Country: US (occurrence: US)
  Receive Date: 20241130
  Receipt Date: 20250422
  Transmission Date: 20250717
  Serious: Yes (Other)
  Sender: UNITED THERAPEUTICS
  Company Number: US-UNITED THERAPEUTICS-UNT-2024-036178

PATIENT
  Sex: Female
  Weight: 62.585 kg

DRUGS (12)
  1. REMODULIN [Suspect]
     Active Substance: TREPROSTINIL
     Indication: Pulmonary arterial hypertension
  2. REMODULIN [Suspect]
     Active Substance: TREPROSTINIL
  3. DEVICE\POLYURETHANE [Suspect]
     Active Substance: DEVICE\POLYURETHANE
     Indication: Product used for unknown indication
  4. IBUPROFEN [Concomitant]
     Active Substance: IBUPROFEN
     Indication: Product used for unknown indication
  5. FLUTICASONE PROPIONATE [Concomitant]
     Active Substance: FLUTICASONE PROPIONATE
     Indication: Product used for unknown indication
  6. MINIVELLE [Concomitant]
     Active Substance: ESTRADIOL
     Indication: Product used for unknown indication
  7. SYSTANE (HYPROMELLOSE 2910 (4000 MPA.S)) [Concomitant]
     Active Substance: HYPROMELLOSE 2910 (4000 MPA.S)
     Indication: Product used for unknown indication
  8. SODIUM CHLORIDE [Concomitant]
     Active Substance: SODIUM CHLORIDE
     Indication: Product used for unknown indication
  9. SYNTHROID [Concomitant]
     Active Substance: LEVOTHYROXINE SODIUM
     Indication: Product used for unknown indication
  10. BENADRYL [Concomitant]
     Active Substance: DIPHENHYDRAMINE HYDROCHLORIDE
     Indication: Product used for unknown indication
  11. OXYGEN [Concomitant]
     Active Substance: OXYGEN
     Indication: Product used for unknown indication
  12. GABAPENTIN [Concomitant]
     Active Substance: GABAPENTIN
     Indication: Product used for unknown indication

REACTIONS (40)
  - Syncope [Unknown]
  - Neuropathy peripheral [Unknown]
  - Pain [Recovering/Resolving]
  - Infusion site pain [Not Recovered/Not Resolved]
  - Infusion site erythema [Unknown]
  - Fatigue [Unknown]
  - Muscular weakness [Unknown]
  - Weight decreased [Unknown]
  - Limb discomfort [Unknown]
  - Dermatitis contact [Unknown]
  - Infusion site swelling [Unknown]
  - Lymphadenitis [Unknown]
  - Dizziness [Not Recovered/Not Resolved]
  - Nausea [Not Recovered/Not Resolved]
  - Vomiting [Recovering/Resolving]
  - Dehydration [Unknown]
  - Dizziness postural [Unknown]
  - Infusion site inflammation [Unknown]
  - Pain in extremity [Unknown]
  - Influenza [Unknown]
  - Flushing [Unknown]
  - Diarrhoea [Unknown]
  - Contusion [Unknown]
  - Decreased appetite [Unknown]
  - Migraine [Recovering/Resolving]
  - Infusion site discharge [Recovering/Resolving]
  - Purulent discharge [Recovering/Resolving]
  - Asthenia [Unknown]
  - Malaise [Unknown]
  - Infusion site infection [Unknown]
  - Device electrical finding [Unknown]
  - Device difficult to use [Unknown]
  - Device malfunction [Unknown]
  - Device alarm issue [Unknown]
  - Device difficult to use [Unknown]
  - Overdose [Recovered/Resolved]
  - Hypersomnia [Unknown]
  - Unintentional medical device removal [Recovered/Resolved]
  - Device use error [Unknown]
  - Device infusion issue [Unknown]

NARRATIVE: CASE EVENT DATE: 20240101
